FAERS Safety Report 19507303 (Version 6)
Quarter: 2021Q3

REPORT INFORMATION
  Report Type: Report from Study
  Country: US (occurrence: US)
  Receive Date: 20210708
  Receipt Date: 20210826
  Transmission Date: 20211014
  Serious: No
  Sender: FDA-Public Use
  Company Number: NVSC2021US144463

PATIENT
  Sex: Female

DRUGS (2)
  1. COSENTYX [Suspect]
     Active Substance: SECUKINUMAB
     Indication: PSORIASIS
     Dosage: 300 MG, QMO
     Route: 058
  2. COSENTYX [Suspect]
     Active Substance: SECUKINUMAB
     Dosage: 300 MG, Q4W
     Route: 058

REACTIONS (7)
  - Rhinorrhoea [Unknown]
  - Therapeutic response delayed [Unknown]
  - Psoriasis [Unknown]
  - Neck pain [Unknown]
  - Pruritus [Unknown]
  - Injection site pain [Unknown]
  - Ear infection [Unknown]
